FAERS Safety Report 8443039-1 (Version None)
Quarter: 2012Q2

REPORT INFORMATION
  Report Type: 
  Country: None (occurrence: None)
  Receive Date: 20120615
  Receipt Date: 20120613
  Transmission Date: 20120825
  Serious: Yes (Hospitalization)
  Sender: FDA-Public Use
  Company Number: PHHY2012IT050720

PATIENT
  Sex: Female

DRUGS (4)
  1. PANTOPRAZOLE [Concomitant]
  2. TRAMADOL HCL [Suspect]
     Dosage: 300 MG, DAILY DOSE
     Route: 048
     Dates: start: 20120514
  3. FEMARA [Concomitant]
  4. LYRICA [Concomitant]
     Dosage: 2 DF, IN EVENING

REACTIONS (4)
  - PALPITATIONS [None]
  - ABDOMINAL DISTENSION [None]
  - DYSPNOEA [None]
  - DYSPEPSIA [None]
